FAERS Safety Report 21684268 (Version 1)
Quarter: 2022Q4

REPORT INFORMATION
  Report Type: Spontaneous
  Country: US (occurrence: None)
  Receive Date: 20221203
  Receipt Date: 20221203
  Transmission Date: 20230113
  Serious: Yes (Death)
  Sender: FDA-Public Use
  Company Number: None

PATIENT
  Age: 75 Year
  Sex: Male

DRUGS (1)
  1. POMALYST [Suspect]
     Active Substance: POMALIDOMIDE
     Indication: Plasma cell myeloma
     Dosage: FREQUENCY : DAILY;?
     Route: 048
     Dates: start: 20221013, end: 20221114

REACTIONS (4)
  - Pyelonephritis acute [None]
  - Sepsis [None]
  - End stage renal disease [None]
  - General physical health deterioration [None]

NARRATIVE: CASE EVENT DATE: 20221114
